FAERS Safety Report 11070782 (Version 2)
Quarter: 2015Q2

REPORT INFORMATION
  Report Type: Report from Study
  Country: CO (occurrence: CO)
  Receive Date: 20150427
  Receipt Date: 20150506
  Transmission Date: 20150821
  Serious: Yes (Life-Threatening)
  Sender: FDA-Public Use
  Company Number: CO-ROCHE-1569145

PATIENT
  Age: 9 Year
  Sex: Female

DRUGS (4)
  1. XOLAIR [Suspect]
     Active Substance: OMALIZUMAB
     Indication: ASTHMA
     Route: 058
     Dates: start: 20150109, end: 20150111
  2. DESLORATADINE. [Concomitant]
     Active Substance: DESLORATADINE
  3. BETAMETHASONE CREAM [Concomitant]
  4. DEXAMETHASONE. [Concomitant]
     Active Substance: DEXAMETHASONE

REACTIONS (8)
  - Epistaxis [Unknown]
  - Lymphocyte count increased [Unknown]
  - Haemoglobin decreased [Unknown]
  - Reticulocyte count increased [Unknown]
  - Immune thrombocytopenic purpura [Unknown]
  - Drug hypersensitivity [Unknown]
  - Haematocrit decreased [Unknown]
  - Neutrophil count decreased [Unknown]
